FAERS Safety Report 23635134 (Version 2)
Quarter: 2024Q2

REPORT INFORMATION
  Report Type: Spontaneous
  Country: US (occurrence: US)
  Receive Date: 20240315
  Receipt Date: 20240527
  Transmission Date: 20240717
  Serious: No
  Sender: FDA-Public Use
  Company Number: US-002147023-NVSC2024US055926

PATIENT

DRUGS (1)
  1. KESIMPTA [Suspect]
     Active Substance: OFATUMUMAB
     Indication: Multiple sclerosis
     Dosage: 20 MG, QMO
     Route: 058
     Dates: start: 202302

REACTIONS (1)
  - White blood cell disorder [Unknown]
